FAERS Safety Report 13376770 (Version 1)
Quarter: 2017Q1

REPORT INFORMATION
  Report Type: Spontaneous
  Country: US (occurrence: US)
  Receive Date: 20170327
  Receipt Date: 20170327
  Transmission Date: 20170429
  Serious: No
  Sender: FDA-Public Use
  Company Number: None

PATIENT
  Age: 54 Year
  Weight: 92.25 kg

DRUGS (1)
  1. TAZORAC [Suspect]
     Active Substance: TAZAROTENE
     Indication: ACNE
     Route: 061
     Dates: start: 20170318, end: 20170320

REACTIONS (4)
  - Application site vesicles [None]
  - Application site erythema [None]
  - Application site acne [None]
  - Drug interaction [None]

NARRATIVE: CASE EVENT DATE: 20170320
